FAERS Safety Report 6010142-5 (Version None)
Quarter: 2008Q4

REPORT INFORMATION
  Report Type: 
  Country: None (occurrence: None)
  Receive Date: 20081217
  Receipt Date: 20081217
  Transmission Date: 20090506
  Serious: No
  Sender: FDA-Public Use
  Company Number: None

PATIENT
  Age: 16 Year
  Sex: Female
  Weight: 72.5755 kg

DRUGS (1)
  1. RISPERIDONE [Suspect]
     Dosage: 1 1/2 TAB QHS PO
     Route: 048
     Dates: start: 20061203, end: 20081106

REACTIONS (5)
  - AGITATION [None]
  - HYPERSEXUALITY [None]
  - MANIA [None]
  - PARANOIA [None]
  - THERAPEUTIC RESPONSE UNEXPECTED WITH DRUG SUBSTITUTION [None]
